FAERS Safety Report 8732045 (Version 3)
Quarter: 2012Q4

REPORT INFORMATION
  Report Type: 
  Country: AU (occurrence: AU)
  Receive Date: 20120820
  Receipt Date: 20121005
  Transmission Date: 20130627
  Serious: Yes (Death)
  Sender: FDA-Public Use
  Company Number: AU-EISAI INC-E3810-05801-SPO-AU

PATIENT
  Age: 78 Year
  Sex: Male
  Weight: 64 kg

DRUGS (5)
  1. PARIET (RABEPRAZOLE) [Suspect]
     Route: 048
  2. CITALOPRAM HYDROBROMIDE [Interacting]
     Route: 048
     Dates: start: 20100408
  3. OLANZAPINE [Concomitant]
     Route: 048
  4. OXAZEPAM [Concomitant]
     Dosage: 7.5
     Route: 048
  5. RISPERIDONE [Concomitant]
     Route: 048

REACTIONS (3)
  - Death [Fatal]
  - Drug level above therapeutic [Unknown]
  - Drug interaction [Unknown]
